FAERS Safety Report 23677342 (Version 1)
Quarter: 2024Q1

REPORT INFORMATION
  Report Type: Spontaneous
  Country: US (occurrence: None)
  Receive Date: 20240326
  Receipt Date: 20240326
  Transmission Date: 20240410
  Serious: Yes (Hospitalization)
  Sender: FDA-Public Use
  Company Number: None

PATIENT
  Sex: Female

DRUGS (3)
  1. JADENU [Suspect]
     Active Substance: DEFERASIROX
     Indication: Sickle cell disease
     Dosage: 1080MG DAILY BY MOUTH?
     Route: 048
     Dates: start: 202107
  2. PROCRIT [Concomitant]
  3. OXBRYTA [Concomitant]
     Active Substance: VOXELOTOR

REACTIONS (3)
  - Full blood count abnormal [None]
  - Viral infection [None]
  - Therapy interrupted [None]
